FAERS Safety Report 20430282 (Version 2)
Quarter: 2024Q2

REPORT INFORMATION
  Report Type: Report from Study
  Country: FR (occurrence: FR)
  Receive Date: 20220204
  Receipt Date: 20240628
  Transmission Date: 20240716
  Serious: Yes (Hospitalization)
  Sender: FDA-Public Use
  Company Number: FR-SERVIER-S20005373

PATIENT

DRUGS (14)
  1. PEGASPARGASE [Suspect]
     Active Substance: PEGASPARGASE
     Indication: Acute lymphocytic leukaemia
     Dosage: 670 IU, ON D4
     Route: 042
     Dates: start: 20190426, end: 20190426
  2. VINCRISTINE [Suspect]
     Active Substance: VINCRISTINE
     Indication: Acute lymphocytic leukaemia
     Dosage: 0.8 MG, ON D1, D8, D15, D22
     Route: 042
     Dates: start: 20190423, end: 20190516
  3. DOXORUBICIN [Suspect]
     Active Substance: DOXORUBICIN
     Indication: Acute lymphocytic leukaemia
     Dosage: 16 MG, ON D1, D8, D15, D22
     Route: 042
     Dates: start: 20190423, end: 20190514
  4. DEXAMETHASONE [Suspect]
     Active Substance: DEXAMETHASONE
     Indication: Acute lymphocytic leukaemia
     Dosage: 3 MG, FROM D1 TO D2
     Route: 048
     Dates: start: 20190423, end: 20190424
  5. DEXAMETHASONE [Suspect]
     Active Substance: DEXAMETHASONE
     Dosage: 5.2 MG, FROM D3 TO D8
     Route: 048
     Dates: start: 20190425, end: 20190430
  6. DEXAMETHASONE [Suspect]
     Active Substance: DEXAMETHASONE
     Dosage: 5.25 MG, FROM D1 TO D7
     Route: 048
     Dates: start: 20190423, end: 20190612
  7. METHOTREXATE [Suspect]
     Active Substance: METHOTREXATE
     Indication: Acute lymphocytic leukaemia
     Dosage: 12 MG, D4
     Route: 037
     Dates: start: 20190426, end: 20190426
  8. THIOGUANINE ANHYDROUS [Suspect]
     Active Substance: THIOGUANINE ANHYDROUS
     Indication: Acute lymphocytic leukaemia
     Dosage: 34 MG, FROM D29 TO D42
     Route: 048
     Dates: start: 20190423, end: 20190612
  9. CYTARABINE [Suspect]
     Active Substance: CYTARABINE
     Indication: Acute lymphocytic leukaemia
     Dosage: 42 MG, FROM D31 TO D34 AND FROM D38 TO D41
     Route: 042
     Dates: start: 20190423, end: 20190612
  10. CYTARABINE [Suspect]
     Active Substance: CYTARABINE
     Dosage: 30 MG, D4 AND D19
     Route: 037
     Dates: start: 20190423, end: 20190612
  11. CYCLOPHOSPHAMIDE [Suspect]
     Active Substance: CYCLOPHOSPHAMIDE
     Indication: Acute lymphocytic leukaemia
     Dosage: 560 MG, D29
     Route: 042
     Dates: start: 20190423, end: 20190612
  12. HYDROCORTISONE [Suspect]
     Active Substance: HYDROCORTISONE\HYDROCORTISONE ACETATE
     Indication: Acute lymphocytic leukaemia
     Dosage: 15 MG, D4 AND D19
     Route: 037
     Dates: start: 20190423, end: 20190612
  13. BACTRIM [Concomitant]
     Active Substance: SULFAMETHOXAZOLE\TRIMETHOPRIM
     Indication: Product used for unknown indication
     Dosage: UNK
     Route: 065
  14. AMITRIPTYLINE HYDROCHLORIDE [Concomitant]
     Active Substance: AMITRIPTYLINE HYDROCHLORIDE
     Indication: Product used for unknown indication
     Dosage: 7 MG
     Route: 042

REACTIONS (2)
  - General physical health deterioration [Recovered/Resolved]
  - Urinary tract infection [Recovered/Resolved]

NARRATIVE: CASE EVENT DATE: 20190502
